FAERS Safety Report 6261739-9 (Version None)
Quarter: 2009Q3

REPORT INFORMATION
  Report Type: 
  Country: None (occurrence: None)
  Receive Date: 20090707
  Receipt Date: 20090707
  Transmission Date: 20100115
  Serious: Yes (Life-Threatening, Other)
  Sender: FDA-Public Use
  Company Number: None

PATIENT
  Sex: Male
  Weight: 104.3273 kg

DRUGS (1)
  1. ZOLPIDEM TARTRATE [Suspect]
     Indication: INSOMNIA
     Dosage: 1 TAB NIGHTLY AS NEEDED PO
     Route: 048
     Dates: start: 20081204, end: 20090704

REACTIONS (2)
  - PRODUCT SUBSTITUTION ISSUE [None]
  - SOMNAMBULISM [None]
